FAERS Safety Report 20085615 (Version 4)
Quarter: 2022Q1

REPORT INFORMATION
  Report Type: Report from Study
  Country: NL (occurrence: NL)
  Receive Date: 20211118
  Receipt Date: 20220331
  Transmission Date: 20220423
  Serious: No
  Sender: FDA-Public Use
  Company Number: NL-ABBVIE-21K-114-4024408-00

PATIENT
  Sex: Male

DRUGS (2)
  1. CARBIDOPA\LEVODOPA [Suspect]
     Active Substance: CARBIDOPA\LEVODOPA
     Indication: Parkinson^s disease
     Route: 050
     Dates: start: 20190304
  2. CARBIDOPA\LEVODOPA [Suspect]
     Active Substance: CARBIDOPA\LEVODOPA
     Dosage: MD: 10.0 ML, CD: 2.8 ML/H, ED: 3.0 ML
     Route: 050

REACTIONS (10)
  - Diplopia [Not Recovered/Not Resolved]
  - Abnormal dreams [Not Recovered/Not Resolved]
  - Fibroma [Unknown]
  - Medical device site discomfort [Unknown]
  - Rehabilitation therapy [Not Recovered/Not Resolved]
  - Memory impairment [Not Recovered/Not Resolved]
  - Device placement issue [Unknown]
  - Parkinson^s disease [Not Recovered/Not Resolved]
  - Anxiety [Not Recovered/Not Resolved]
  - Weight decreased [Recovered/Resolved]
